FAERS Safety Report 7310438-0 (Version None)
Quarter: 2011Q1

REPORT INFORMATION
  Report Type: 
  Country: None (occurrence: None)
  Receive Date: 20110224
  Receipt Date: 20100823
  Transmission Date: 20110831
  Serious: No
  Sender: FDA-Public Use
  Company Number: US-BRISTOL-MYERS SQUIBB COMPANY-15246796

PATIENT
  Sex: Female

DRUGS (4)
  1. GLUCOPHAGE [Suspect]
  2. METFORMIN HCL [Suspect]
  3. VICTOZA [Suspect]
  4. ACTOS [Suspect]

REACTIONS (2)
  - BLOOD GLUCOSE DECREASED [None]
  - NAUSEA [None]
